FAERS Safety Report 23657926 (Version 1)
Quarter: 2024Q1

REPORT INFORMATION
  Report Type: Report from Study
  Country: IT (occurrence: IT)
  Receive Date: 20240321
  Receipt Date: 20240321
  Transmission Date: 20240410
  Serious: Yes (Hospitalization)
  Sender: FDA-Public Use
  Company Number: IT-MYLANLABS-2024M1025865

PATIENT
  Age: 2 Year
  Sex: Male

DRUGS (3)
  1. LEVETIRACETAM [Suspect]
     Active Substance: LEVETIRACETAM
     Indication: Gelastic seizure
     Dosage: UNK
     Route: 065
  2. CARBAMAZEPINE [Suspect]
     Active Substance: CARBAMAZEPINE
     Indication: Gelastic seizure
     Dosage: 180 MILLIGRAM, BID, , INCREASED TO TAPER IT WITH HIS WEIGHT; 9ML (180 MG) TWICE A DAY
     Route: 065
  3. CORTICOTROPIN [Suspect]
     Active Substance: CORTICOTROPIN
     Indication: Gelastic seizure
     Dosage: UNK
     Route: 065

REACTIONS (1)
  - Drug ineffective [Unknown]
